FAERS Safety Report 21441027 (Version 1)
Quarter: 2022Q4

REPORT INFORMATION
  Report Type: Spontaneous
  Country: None (occurrence: US)
  Receive Date: 20221010
  Receipt Date: 20221010
  Transmission Date: 20230113
  Serious: Yes (Other)
  Sender: FDA-Public Use
  Company Number: US-Performance Health, LLC-2133634

PATIENT
  Sex: Female

DRUGS (1)
  1. BIOFREEZE [Suspect]
     Active Substance: MENTHOL
     Indication: Analgesic therapy
     Route: 061

REACTIONS (1)
  - Chemical burn [Unknown]
